FAERS Safety Report 5384997-1 (Version None)
Quarter: 2007Q3

REPORT INFORMATION
  Report Type: 
  Country: None (occurrence: None)
  Receive Date: 20070712
  Receipt Date: 20070710
  Transmission Date: 20080115
  Serious: Yes (Other)
  Sender: FDA-Public Use
  Company Number: PHNU2007DE01581

PATIENT
  Sex: Male

DRUGS (3)
  1. ENBREL [Suspect]
     Dosage: UNK, UNK
     Dates: start: 20070401
  2. ECONAZOLE NITRATE [Concomitant]
  3. CYCLOSPORINE [Suspect]
     Indication: PSORIASIS
     Dosage: 100 MG DAILY
     Route: 048
     Dates: start: 20070201

REACTIONS (3)
  - BLOOD PRESSURE INCREASED [None]
  - DRUG INTERACTION [None]
  - HYPERTENSION [None]
